FAERS Safety Report 5821270-9 (Version None)
Quarter: 2008Q3

REPORT INFORMATION
  Report Type: 
  Country: None (occurrence: None)
  Receive Date: 20080722
  Receipt Date: 20080722
  Transmission Date: 20090109
  Serious: Yes (Hospitalization)
  Sender: FDA-Public Use
  Company Number: None

PATIENT
  Age: 57 Year
  Sex: Male
  Weight: 61 kg

DRUGS (1)
  1. AMANTADINE HCL [Suspect]
     Indication: PARKINSON'S DISEASE
     Dosage: 100MG BID

REACTIONS (2)
  - HALLUCINATION [None]
  - INCORRECT DOSE ADMINISTERED [None]
